FAERS Safety Report 7905738-7 (Version None)
Quarter: 2011Q4

REPORT INFORMATION
  Report Type: 
  Country: None (occurrence: None)
  Receive Date: 20111108
  Receipt Date: 20111024
  Transmission Date: 20120403
  Serious: Yes (Hospitalization)
  Sender: FDA-Public Use
  Company Number: 2011P1009880

PATIENT
  Age: 38 Year
  Sex: Male

DRUGS (1)
  1. LITHIUM CARBONATE [Suspect]
     Indication: MANIA
     Dosage: PO
     Route: 048

REACTIONS (2)
  - REITER'S SYNDROME [None]
  - CONDITION AGGRAVATED [None]
